FAERS Safety Report 4446100-1 (Version None)
Quarter: 2004Q3

REPORT INFORMATION
  Report Type: 
  Country: None (occurrence: None)
  Receive Date: 20040903
  Receipt Date: 20040825
  Transmission Date: 20050211
  Serious: Yes (Death, Other)
  Sender: FDA-Public Use
  Company Number: USA-2004-0014260

PATIENT
  Age: 58 Year
  Sex: Female
  Weight: 49 kg

DRUGS (10)
  1. OXYCONTIN [Suspect]
     Indication: PAIN
     Dosage: 20 MG, BID
     Dates: start: 20040310
  2. MEGACE [Concomitant]
  3. MORPHINE SULFATE [Concomitant]
  4. PROCRIT [Concomitant]
  5. REGLAN [Concomitant]
  6. PROTONIX [Concomitant]
  7. MARINOL [Concomitant]
  8. DILANTIN [Concomitant]
  9. SENNA [Concomitant]
  10. VITAPLEX (VITAMINS NOS) [Concomitant]

REACTIONS (2)
  - LUNG CANCER METASTATIC [None]
  - MALIGNANT NEOPLASM PROGRESSION [None]
